FAERS Safety Report 8332342-1 (Version None)
Quarter: 2012Q2

REPORT INFORMATION
  Report Type: 
  Country: None (occurrence: None)
  Receive Date: 20120430
  Receipt Date: 20120417
  Transmission Date: 20120825
  Serious: Yes (Other)
  Sender: FDA-Public Use
  Company Number: TPA2012A00540

PATIENT
  Age: 70 Year
  Sex: Female

DRUGS (10)
  1. VICTOZA [Concomitant]
  2. LERCANIDIPINE [Concomitant]
  3. RAMIPRIL [Concomitant]
  4. ADENURIC (FEBUXOSTAT) [Suspect]
     Indication: GOUT
     Dosage: 80 MG (80 MG,1 IN 1 D) ORAL
     Route: 048
     Dates: start: 20111115, end: 20111228
  5. MARCUMAR [Concomitant]
  6. METFORMIN HYDROCHLORIDE [Concomitant]
  7. NEBIVOLOL (NESIVOLOL) [Concomitant]
  8. TORSEMIDE [Concomitant]
  9. RANITIDINE HCL [Concomitant]
  10. ASPIRIN [Concomitant]

REACTIONS (2)
  - CHOLESTASIS [None]
  - CHEST DISCOMFORT [None]
